FAERS Safety Report 25176932 (Version 6)
Quarter: 2025Q3

REPORT INFORMATION
  Report Type: Report from Study
  Country: US (occurrence: US)
  Receive Date: 20250409
  Receipt Date: 20250709
  Transmission Date: 20251020
  Serious: Yes (Hospitalization, Other)
  Sender: SUNOVION
  Company Number: US-SUMITOMO PHARMA SWITZERLAND GMBH-2025SPA003246

PATIENT

DRUGS (6)
  1. ORGOVYX [Suspect]
     Active Substance: RELUGOLIX
     Indication: Prostate cancer
     Dosage: 360 MG, SINGLE
     Route: 048
     Dates: start: 20250311, end: 20250311
  2. ORGOVYX [Suspect]
     Active Substance: RELUGOLIX
     Dosage: 120 MG, QD
     Route: 048
     Dates: start: 20250312
  3. METOPROLOL TARTRATE [Concomitant]
     Active Substance: METOPROLOL TARTRATE
     Route: 048
  4. TYLENOL [Concomitant]
     Active Substance: ACETAMINOPHEN
     Route: 048
  5. SODIUM BICARBONATE [Concomitant]
     Active Substance: SODIUM BICARBONATE
     Route: 048
  6. ELIQUIS [Concomitant]
     Active Substance: APIXABAN
     Route: 065

REACTIONS (13)
  - Cerebrovascular accident [Recovering/Resolving]
  - Cerebrovascular accident [Unknown]
  - Urinary incontinence [Not Recovered/Not Resolved]
  - Decreased appetite [Recovering/Resolving]
  - Hypersomnia [Unknown]
  - Gait disturbance [Unknown]
  - Amnesia [Not Recovered/Not Resolved]
  - Speech disorder [Unknown]
  - Heart rate increased [Unknown]
  - Vomiting [Unknown]
  - Behaviour disorder [Unknown]
  - Asthenia [Unknown]
  - Hypertension [Unknown]

NARRATIVE: CASE EVENT DATE: 20250504
